FAERS Safety Report 25631177 (Version 1)
Quarter: 2025Q3

REPORT INFORMATION
  Report Type: Report from Study
  Country: US (occurrence: US)
  Receive Date: 20250801
  Receipt Date: 20250801
  Transmission Date: 20251020
  Serious: Yes (Hospitalization)
  Sender: AMNEAL
  Company Number: US-AMNEAL PHARMACEUTICALS-2024-AMRX-04791

PATIENT
  Sex: Female

DRUGS (6)
  1. CARBIDOPA\LEVODOPA [Suspect]
     Active Substance: CARBIDOPA\LEVODOPA
     Indication: Product used for unknown indication
     Dosage: (23.75-95 MG) 3 CAPSULES, 3 /DAY FOR 3 MONTHS
     Route: 048
  2. CARBIDOPA\LEVODOPA [Suspect]
     Active Substance: CARBIDOPA\LEVODOPA
     Dosage: (36.25-145 MG), 3 /DAY
     Route: 048
     Dates: start: 20241230
  3. CARBIDOPA\LEVODOPA [Suspect]
     Active Substance: CARBIDOPA\LEVODOPA
     Dosage: (23.75-95 MG) 3 CAPSULES, 3 /DAY
     Route: 048
     Dates: start: 20250207
  4. CARBIDOPA\LEVODOPA [Suspect]
     Active Substance: CARBIDOPA\LEVODOPA
     Dosage: (23.75-95 MG) 1 CAPSULES, 3 /DAY
     Route: 048
     Dates: start: 20250602
  5. CARBIDOPA\LEVODOPA [Suspect]
     Active Substance: CARBIDOPA\LEVODOPA
     Dosage: 36.25-145 MG 3 CAPSULES, 3 /DAY FOR 3 MONTHS
     Route: 048
  6. CARBIDOPA\LEVODOPA [Suspect]
     Active Substance: CARBIDOPA\LEVODOPA
     Dosage: 23.75-95 MG 3 CAPSULES, 3 /DAY
     Route: 048
     Dates: start: 20250718

REACTIONS (2)
  - Blood pressure fluctuation [Unknown]
  - Hip fracture [Unknown]
